FAERS Safety Report 6682003-X (Version None)
Quarter: 2010Q2

REPORT INFORMATION
  Report Type: 
  Country: None (occurrence: None)
  Receive Date: 20100414
  Receipt Date: 20100414
  Transmission Date: 20101027
  Serious: Yes (Other)
  Sender: FDA-Public Use
  Company Number: None

PATIENT
  Age: 54 Month
  Sex: Female
  Weight: 77.1115 kg

DRUGS (1)
  1. PRILOSEC OTC [Suspect]
     Dosage: 1 TABLET 1 PER DAY
     Dates: start: 20051110, end: 20051129

REACTIONS (1)
  - DYSPNOEA [None]
